FAERS Safety Report 9128801 (Version 2)
Quarter: 2013Q1

REPORT INFORMATION
  Report Type: Report from Study
  Country: DE (occurrence: DE)
  Receive Date: 20130228
  Receipt Date: 20130312
  Transmission Date: 20140127
  Serious: Yes (Other)
  Sender: FDA-Public Use
  Company Number: DE-GILEAD-2013-0070610

PATIENT
  Age: 42 Year
  Sex: Female

DRUGS (3)
  1. EMTRICITABINE/TENOFOVIR DISOPROXIL FUMARATE [Suspect]
     Indication: HIV INFECTION
     Dosage: 1 DF, UNK
     Route: 048
     Dates: start: 20110504
  2. DARUNAVIR [Suspect]
     Indication: HIV INFECTION
     Dosage: 800 DF, QD
     Route: 048
     Dates: start: 20110504
  3. RITONAVIR [Suspect]
     Indication: HIV INFECTION
     Dosage: 100 MG, QD
     Route: 048
     Dates: start: 20110504

REACTIONS (2)
  - Abortion spontaneous [Recovered/Resolved]
  - Premature rupture of membranes [Unknown]
